FAERS Safety Report 21341761 (Version 1)
Quarter: 2022Q3

REPORT INFORMATION
  Report Type: Report from Study
  Country: US (occurrence: US)
  Receive Date: 20220916
  Receipt Date: 20220916
  Transmission Date: 20221027
  Serious: Yes (Other)
  Sender: FDA-Public Use
  Company Number: US-SA-SAC20220913001185

PATIENT
  Age: 26 Year
  Sex: Female

DRUGS (1)
  1. IMIGLUCERASE [Suspect]
     Active Substance: IMIGLUCERASE
     Indication: Gaucher^s disease
     Dosage: 3600 UNK, QOW
     Route: 042
     Dates: start: 20220113

REACTIONS (4)
  - Thrombocytopenia [Unknown]
  - Bone marrow infiltration [Unknown]
  - Anaemia [Unknown]
  - Bone disorder [Unknown]

NARRATIVE: CASE EVENT DATE: 20220101
